FAERS Safety Report 8474991-6 (Version None)
Quarter: 2012Q2

REPORT INFORMATION
  Report Type: 
  Country: None (occurrence: None)
  Receive Date: 20120628
  Receipt Date: 20120615
  Transmission Date: 20120825
  Serious: Yes (Other)
  Sender: FDA-Public Use
  Company Number: US-JNJFOC-20120609636

PATIENT
  Age: 21 Year
  Sex: Male
  Weight: 49.9 kg

DRUGS (1)
  1. EXTRA STRENGTH TYLENOL PM [Suspect]
     Indication: DEPRESSION
     Dosage: 46 CAPLETS, AT ONCE
     Route: 048
     Dates: start: 20120614

REACTIONS (1)
  - INTENTIONAL OVERDOSE [None]
